FAERS Safety Report 22034036 (Version 1)
Quarter: 2023Q1

REPORT INFORMATION
  Report Type: Spontaneous
  Country: US (occurrence: None)
  Receive Date: 20230222
  Receipt Date: 20230222
  Transmission Date: 20230418
  Serious: Yes (Other)
  Sender: FDA-Public Use
  Company Number: None

PATIENT
  Age: 80 Year
  Sex: Female
  Weight: 85.5 kg

DRUGS (3)
  1. REPATHA [Suspect]
     Active Substance: EVOLOCUMAB
     Indication: Blood cholesterol
     Dates: start: 20230115, end: 20230115
  2. Liscinipril Gabapentin [Concomitant]
  3. FISH OIL [Concomitant]
     Active Substance: FISH OIL

REACTIONS (2)
  - Pain [None]
  - Asthenia [None]

NARRATIVE: CASE EVENT DATE: 20230115
